FAERS Safety Report 6768592-5 (Version None)
Quarter: 2010Q2

REPORT INFORMATION
  Report Type: 
  Country: None (occurrence: None)
  Receive Date: 20100614
  Receipt Date: 20100602
  Transmission Date: 20101027
  Serious: Yes (Other)
  Sender: FDA-Public Use
  Company Number: JP-PFIZER INC-2010066586

PATIENT
  Age: 17 Year
  Sex: Female

DRUGS (5)
  1. ZITHROMAC SR [Suspect]
     Indication: PYREXIA
     Dosage: 2 G, SINGLE
     Route: 048
     Dates: start: 20100524, end: 20100524
  2. ZITHROMAC SR [Suspect]
     Indication: OROPHARYNGEAL PAIN
  3. LOXOPROFEN SODIUM [Suspect]
     Indication: PYREXIA
     Dosage: 180 MG, 1X/DAY
     Route: 048
  4. LOXOPROFEN SODIUM [Suspect]
     Indication: OROPHARYNGEAL PAIN
  5. DASEN [Concomitant]
     Route: 048

REACTIONS (1)
  - HAEMATURIA [None]
